FAERS Safety Report 5088345-6 (Version None)
Quarter: 2006Q3

REPORT INFORMATION
  Report Type: 
  Country: None (occurrence: None)
  Receive Date: 20060821
  Receipt Date: 20060814
  Transmission Date: 20061208
  Serious: Yes (Other)
  Sender: FDA-Public Use
  Company Number: 147063USA

PATIENT
  Age: 44 Year
  Sex: Male
  Weight: 79.3795 kg

DRUGS (2)
  1. LISINOPRIL [Suspect]
     Indication: BLOOD PRESSURE INCREASED
     Dosage: 40 MILLIGRAM QD ORAL
     Route: 048
     Dates: start: 20060201, end: 20060803
  2. ZETIA [Suspect]
     Dates: start: 20060601, end: 20060701

REACTIONS (5)
  - ANOREXIA [None]
  - BACK PAIN [None]
  - HEADACHE [None]
  - NAUSEA [None]
  - RENAL FAILURE CHRONIC [None]
